FAERS Safety Report 6628473-4 (Version None)
Quarter: 2010Q1

REPORT INFORMATION
  Report Type: 
  Country: None (occurrence: None)
  Receive Date: 20100311
  Receipt Date: 20100308
  Transmission Date: 20100710
  Serious: Yes (Other)
  Sender: FDA-Public Use
  Company Number: US-SANOFI-AVENTIS-2010SA013515

PATIENT
  Sex: Male

DRUGS (2)
  1. LOVENOX [Suspect]
     Route: 065
     Dates: start: 20100101, end: 20100101
  2. COUMADIN [Suspect]

REACTIONS (1)
  - INTERNATIONAL NORMALISED RATIO INCREASED [None]
